FAERS Safety Report 25715241 (Version 2)
Quarter: 2025Q4

REPORT INFORMATION
  Report Type: Report from Study
  Country: TH (occurrence: TH)
  Receive Date: 20250822
  Receipt Date: 20251031
  Transmission Date: 20260117
  Serious: Yes (Death, Hospitalization)
  Sender: MERCK SHARP & DOHME LLC
  Company Number: TH-009507513-2297337

PATIENT
  Age: 71 Year
  Sex: Male
  Weight: 40 kg

DRUGS (1)
  1. KEYTRUDA [Suspect]
     Active Substance: PEMBROLIZUMAB
     Indication: Non-small cell lung cancer metastatic
     Route: 042
     Dates: start: 20250611, end: 20250723

REACTIONS (4)
  - Death [Fatal]
  - Pyrexia [Unknown]
  - Brain neoplasm malignant [Unknown]
  - Off label use [Unknown]

NARRATIVE: CASE EVENT DATE: 20250611
